FAERS Safety Report 4785590-1 (Version None)
Quarter: 2005Q4

REPORT INFORMATION
  Report Type: 
  Country: None (occurrence: None)
  Receive Date: 20051003
  Receipt Date: 20050929
  Transmission Date: 20060501
  Serious: Yes (Hospitalization)
  Sender: FDA-Public Use
  Company Number: FR-GLAXOSMITHKLINE-B0395475A

PATIENT
  Age: 62 Year
  Sex: Female
  Weight: 55 kg

DRUGS (12)
  1. CLAMOXYL [Suspect]
     Indication: ERYSIPELAS
     Dosage: 3G PER DAY
     Route: 048
     Dates: start: 20050802, end: 20050804
  2. PYOSTACINE [Suspect]
     Indication: ERYSIPELAS
     Route: 048
     Dates: start: 20050730, end: 20050731
  3. MAXILASE [Suspect]
     Indication: ERYSIPELAS
     Route: 048
     Dates: start: 20050730, end: 20050731
  4. PENICILLINE G PANPHARMA [Suspect]
     Indication: ERYSIPELAS
     Route: 042
     Dates: start: 20050731, end: 20050802
  5. NUREFLEX [Suspect]
     Indication: ERYSIPELAS
     Route: 048
     Dates: start: 20050730, end: 20050731
  6. LOVENOX [Concomitant]
     Indication: ERYSIPELAS
     Dosage: 80MG PER DAY
     Route: 058
     Dates: start: 20050731, end: 20050804
  7. AVLOCARDYL [Concomitant]
     Route: 065
  8. TANAKAN [Concomitant]
     Route: 065
     Dates: end: 20050804
  9. SERC [Concomitant]
     Route: 065
     Dates: end: 20050804
  10. LEXOMIL [Concomitant]
     Route: 065
  11. DIANTALVIC [Concomitant]
     Route: 065
     Dates: end: 20050804
  12. ORGARAN [Concomitant]
     Dates: start: 20050804

REACTIONS (6)
  - ECCHYMOSIS [None]
  - HEPATOCELLULAR DAMAGE [None]
  - INJECTION SITE HAEMORRHAGE [None]
  - PURPURA [None]
  - THROMBOCYTOPENIA [None]
  - THROMBOCYTOPENIC PURPURA [None]
